FAERS Safety Report 16574961 (Version 1)
Quarter: 2019Q3

REPORT INFORMATION
  Report Type: Spontaneous
  Country: ES (occurrence: ES)
  Receive Date: 20190715
  Receipt Date: 20190715
  Transmission Date: 20191004
  Serious: Yes (Hospitalization)
  Sender: FDA-Public Use
  Company Number: PHHY2019ES158558

PATIENT
  Age: 8 Month
  Sex: Male
  Weight: 11 kg

DRUGS (5)
  1. VIGABATRINA [Concomitant]
     Indication: INFANTILE SPASMS
     Dosage: 750 MG, Q12H
     Route: 048
     Dates: start: 20190308
  2. AMOXICILLIN. [Suspect]
     Active Substance: AMOXICILLIN
     Indication: BRONCHITIS
     Dosage: 6 ML, Q8H
     Route: 048
     Dates: start: 20190318, end: 20190326
  3. SALBUTAMOL [Interacting]
     Active Substance: ALBUTEROL
     Indication: BRONCHITIS
     Dosage: 200 UG, Q6H
     Route: 055
     Dates: start: 20190318, end: 20190326
  4. TETRACOSACTIDE [Interacting]
     Active Substance: COSYNTROPIN
     Indication: INFANTILE SPASMS
     Dosage: 0.3 MG, UNK (3 DAY)
     Route: 030
     Dates: start: 20190308, end: 20190407
  5. OMEPRAZOL [Interacting]
     Active Substance: OMEPRAZOLE
     Indication: GASTRITIS PROPHYLAXIS
     Dosage: 0.5 ML, QD
     Route: 048
     Dates: start: 20190318, end: 20190326

REACTIONS (1)
  - Hypokalaemia [Recovered/Resolved]

NARRATIVE: CASE EVENT DATE: 20190326
